FAERS Safety Report 5743084-0 (Version None)
Quarter: 2008Q2

REPORT INFORMATION
  Report Type: 
  Country: None (occurrence: None)
  Receive Date: 20080516
  Receipt Date: 20080429
  Transmission Date: 20081010
  Serious: No
  Sender: FDA-Public Use
  Company Number: 0805119US

PATIENT
  Age: 62 Year
  Sex: Male

DRUGS (4)
  1. SANCTURA XR [Suspect]
     Indication: HYPERTONIC BLADDER
     Dosage: 60 MG, QAM, ORAL
     Route: 048
     Dates: start: 20080423, end: 20080426
  2. CARDURA CR (DOXAZOSIN) [Concomitant]
  3. LIPITOR [Concomitant]
  4. NIASPAN [Concomitant]

REACTIONS (3)
  - CONSTIPATION [None]
  - DRY THROAT [None]
  - URINARY RETENTION [None]
